FAERS Safety Report 6719803-3 (Version None)
Quarter: 2010Q2

REPORT INFORMATION
  Report Type: 
  Country: None (occurrence: None)
  Receive Date: 20100511
  Receipt Date: 20100428
  Transmission Date: 20101027
  Serious: Yes (Other)
  Sender: FDA-Public Use
  Company Number: PHHY2010US27945

PATIENT
  Sex: Female

DRUGS (2)
  1. VIVELLE-DOT [Suspect]
     Dosage: UNK
     Route: 062
     Dates: start: 20091101
  2. PROGESTERONE [Suspect]
     Dosage: UNK
     Dates: start: 20091101

REACTIONS (14)
  - ABDOMINAL PAIN UPPER [None]
  - ASTHENIA [None]
  - DIZZINESS [None]
  - FEELING ABNORMAL [None]
  - GASTRITIS [None]
  - GASTROINTESTINAL DISORDER [None]
  - HAEMORRHAGE [None]
  - HEADACHE [None]
  - INFLUENZA LIKE ILLNESS [None]
  - MALAISE [None]
  - NAUSEA [None]
  - PARAESTHESIA [None]
  - ULCER [None]
  - VOMITING [None]
